FAERS Safety Report 4956404-1 (Version None)
Quarter: 2006Q1

REPORT INFORMATION
  Report Type: 
  Country: None (occurrence: None)
  Receive Date: 20060328
  Receipt Date: 20060328
  Transmission Date: 20060701
  Serious: Yes (Hospitalization)
  Sender: FDA-Public Use
  Company Number: None

PATIENT
  Age: 59 Year
  Sex: Male
  Weight: 172.4 kg

DRUGS (1)
  1. WARFARIN [Suspect]
     Indication: ATRIAL FIBRILLATION
     Dosage: 5 MG QD PO
     Route: 048

REACTIONS (6)
  - COLON CANCER METASTATIC [None]
  - FALL [None]
  - HEAD INJURY [None]
  - INTERNATIONAL NORMALISED RATIO INCREASED [None]
  - LIMB INJURY [None]
  - METASTASES TO LUNG [None]
